FAERS Safety Report 10072808 (Version 1)
Quarter: 2014Q2

REPORT INFORMATION
  Report Type: Report from Study
  Country: US (occurrence: US)
  Receive Date: 20140411
  Receipt Date: 20140411
  Transmission Date: 20141212
  Serious: Yes (Other)
  Sender: FDA-Public Use
  Company Number: PHEH2014US007039

PATIENT
  Sex: Female

DRUGS (12)
  1. TASIGNA [Suspect]
     Indication: CHRONIC MYELOID LEUKAEMIA
     Dosage: 400 MG, BID
     Route: 048
  2. ALBUTEROL [Concomitant]
     Dosage: 0.63 MG, QID
     Route: 055
  3. ALPRAZOLAM [Concomitant]
     Dosage: 1 MG, UNK
     Route: 048
  4. NEXIUM//ESOMEPRAZOLE MAGNESIUM [Concomitant]
     Dosage: 40 MG, QD
     Route: 048
  5. ALAVERT [Concomitant]
     Dosage: 5 MG, QD
  6. SYMBICORT [Concomitant]
  7. OMEGA 3 [Concomitant]
  8. GLUCOSAMINE [Concomitant]
  9. MULTIVIT//VITAMINS NOS [Concomitant]
  10. PSYLLIUM [Concomitant]
  11. CRANBERRY BERCO [Concomitant]
  12. ANTIOXIDANT [Concomitant]

REACTIONS (2)
  - Lower limb fracture [Unknown]
  - Upper respiratory tract infection [Unknown]
